FAERS Safety Report 16705614 (Version 13)
Quarter: 2021Q3

REPORT INFORMATION
  Report Type: Report from Study
  Country: BR (occurrence: BR)
  Receive Date: 20190815
  Receipt Date: 20210714
  Transmission Date: 20211014
  Serious: Yes (Hospitalization, Disabling)
  Sender: FDA-Public Use
  Company Number: BR-ROCHE-2379364

PATIENT
  Age: 65 Year
  Sex: Female
  Weight: 51 kg

DRUGS (43)
  1. ATEZOLIZUMAB. [Suspect]
     Active Substance: ATEZOLIZUMAB
     Indication: HER2 POSITIVE BREAST CANCER
     Dosage: FOR 4 CYCLES?DATE OF MOST RECENT DOSE OF ATEZOLIZUMAB PRIOR TO MYOCARDITIS ONSET: 09/AUG/2019
     Route: 042
     Dates: start: 20190521
  2. DOXORUBICIN [Suspect]
     Active Substance: DOXORUBICIN
     Indication: HER2 POSITIVE BREAST CANCER
     Dosage: DATE OF MOST RECENT DOSE OF DOXORUBICIN (88.2 MG) PRIOR TO MYOCARDITIS ONSET: 03/JUL/2019
     Route: 042
     Dates: start: 20190521
  3. PACLITAXEL. [Suspect]
     Active Substance: PACLITAXEL
     Indication: HER2 POSITIVE BREAST CANCER
     Dosage: FOR 12 CONTINUOUS WEEKS?DATE OF MOST RECENT DOSE OF PACLITAXEL (114.4 MG) PRIOR TO MYOCARDITIS ONSET
     Route: 042
     Dates: start: 20190718
  4. RANITIDINE. [Concomitant]
     Active Substance: RANITIDINE
     Indication: GASTRITIS
     Dates: start: 20190625
  5. RED BLOOD CELLS [Concomitant]
     Active Substance: HUMAN RED BLOOD CELL
     Indication: ANAEMIA
     Dates: start: 20190805, end: 20190805
  6. DEXAMETHASONE. [Concomitant]
     Active Substance: DEXAMETHASONE
     Route: 042
     Dates: start: 20190725, end: 20190725
  7. LACTULOSE. [Concomitant]
     Active Substance: LACTULOSE
     Dosage: CONSTIPATION PREVENTION
     Dates: start: 20190811, end: 20190815
  8. DOMPERIDONE [Concomitant]
     Active Substance: DOMPERIDONE
     Indication: ABDOMINAL PAIN
     Dates: start: 20190625
  9. DIPHENHYDRAMINE. [Concomitant]
     Active Substance: DIPHENHYDRAMINE
     Dates: start: 20190718, end: 20190718
  10. BISACODYL. [Concomitant]
     Active Substance: BISACODYL
     Dosage: CONSTIPATION PREVENTION
     Dates: start: 20190811, end: 20190811
  11. CEFUROXIME. [Concomitant]
     Active Substance: CEFUROXIME
     Dates: start: 20190809, end: 20190815
  12. METOCLOPRAMIDE. [Concomitant]
     Active Substance: METOCLOPRAMIDE
     Dates: start: 20190810, end: 20190813
  13. LOSARTAN. [Concomitant]
     Active Substance: LOSARTAN
     Indication: HYPERTENSION
     Dates: start: 20190810, end: 20190815
  14. ENOXAPARIN [Concomitant]
     Active Substance: ENOXAPARIN
     Dates: start: 20190811, end: 20190815
  15. PARACETAMOL+CODEIN [Concomitant]
     Active Substance: ACETAMINOPHEN\CODEINE PHOSPHATE
     Dates: start: 20190814, end: 20190814
  16. AMLODIPINE [Concomitant]
     Active Substance: AMLODIPINE BESYLATE
     Indication: HYPERTENSION
     Dates: start: 20190814, end: 20190814
  17. TRASTUZUMAB. [Suspect]
     Active Substance: TRASTUZUMAB
     Dosage: MAINTENANCE DOSE?DATE OF MOST RECENT DOSE OF TRASTUZUMAB (306 MG) PRIOR TO MYOCARDITIS ONSET: 09/AUG
     Route: 042
     Dates: start: 20190809
  18. ONDANSETRON [Concomitant]
     Active Substance: ONDANSETRON
     Indication: VOMITING
     Dates: start: 20190703
  19. RANITIDINE. [Concomitant]
     Active Substance: RANITIDINE
     Dates: start: 20190725, end: 20190725
  20. DIPHENHYDRAMINE. [Concomitant]
     Active Substance: DIPHENHYDRAMINE
     Dates: start: 20190725, end: 20190725
  21. DIPHENHYDRAMINE. [Concomitant]
     Active Substance: DIPHENHYDRAMINE
     Dates: start: 20190809, end: 20190809
  22. DIPYRONE [Concomitant]
     Active Substance: DIPYRONE
     Dates: start: 20190809, end: 20190814
  23. PARACETAMOL [Concomitant]
     Active Substance: ACETAMINOPHEN
     Dates: start: 20190810, end: 20190810
  24. TRASTUZUMAB. [Suspect]
     Active Substance: TRASTUZUMAB
     Indication: HER2 POSITIVE BREAST CANCER
     Dosage: LOADING DOSE IN CYCLE 1
     Route: 042
     Dates: start: 20190718
  25. DIPHENHYDRAMINE. [Concomitant]
     Active Substance: DIPHENHYDRAMINE
     Dates: start: 20190802, end: 20190802
  26. CYCLOPHOSPHAMIDE. [Suspect]
     Active Substance: CYCLOPHOSPHAMIDE
     Indication: HER2 POSITIVE BREAST CANCER
     Dosage: DATE OF MOST RECENT DOSE OF CYCLOPHOSPHAMIDE (882 MG) PRIOR TO MYOCARDITIS ONSET: 03/JUL/2019
     Route: 042
     Dates: start: 20190521
  27. OMEPRAZOL [Concomitant]
     Active Substance: OMEPRAZOLE
     Indication: GASTRITIS
     Dates: start: 20190625
  28. RANITIDINE. [Concomitant]
     Active Substance: RANITIDINE
     Dates: start: 20190718, end: 20190718
  29. LACRIMAL [Concomitant]
     Indication: MEIBOMIANITIS
     Dosage: EYE DROPS
     Dates: start: 20190806
  30. RANITIDINE. [Concomitant]
     Active Substance: RANITIDINE
     Dates: start: 20190802, end: 20190802
  31. ONDANSETRON [Concomitant]
     Active Substance: ONDANSETRON
     Dates: start: 20190812, end: 20190812
  32. FILGRASTIM [Concomitant]
     Active Substance: FILGRASTIM
     Indication: NEUTROPENIA
     Dates: start: 20190704, end: 20190710
  33. DEXAMETHASONE. [Concomitant]
     Active Substance: DEXAMETHASONE
     Route: 042
     Dates: start: 20190718, end: 20190718
  34. DEXAMETHASONE. [Concomitant]
     Active Substance: DEXAMETHASONE
     Route: 042
     Dates: start: 20190809, end: 20190809
  35. FENOTEROL;IPRATROPIUM [Concomitant]
     Active Substance: FENOTEROL\IPRATROPIUM
     Indication: DYSPNOEA
     Dates: start: 20190809, end: 20190814
  36. PERTUZUMAB. [Suspect]
     Active Substance: PERTUZUMAB
     Indication: HER2 POSITIVE BREAST CANCER
     Dosage: LOADING DOSE IN CYCLE 1
     Route: 042
     Dates: start: 20190718
  37. PERTUZUMAB. [Suspect]
     Active Substance: PERTUZUMAB
     Dosage: MAINTENANCE DOSE?DATE OF MOST RECENT DOSE OF PERTUZUMAB (420 MG) PRIOR TO MYOCARDITIS ONSET: 09/AUG/
     Route: 042
     Dates: start: 20190809
  38. RANITIDINE. [Concomitant]
     Active Substance: RANITIDINE
     Dates: start: 20190809, end: 20190809
  39. DEXAMETHASONE. [Concomitant]
     Active Substance: DEXAMETHASONE
     Route: 042
     Dates: start: 20190802, end: 20190802
  40. METILPREDNISOLONE [Concomitant]
     Active Substance: METHYLPREDNISOLONE
     Indication: PNEUMONITIS
     Dosage: 1 MG/KG
     Route: 042
     Dates: start: 20190809, end: 20190814
  41. MORPHINE SULPHATE [Concomitant]
     Active Substance: MORPHINE SULFATE
     Dates: start: 20190810, end: 20190812
  42. NISTATIN [Concomitant]
     Active Substance: NYSTATIN
     Dates: start: 20190813, end: 20190815
  43. UREA. [Concomitant]
     Active Substance: UREA
     Dates: start: 20190813, end: 20190814

REACTIONS (1)
  - Cardiomyopathy [Recovered/Resolved]

NARRATIVE: CASE EVENT DATE: 20190809
